FAERS Safety Report 19684365 (Version 1)
Quarter: 2021Q3

REPORT INFORMATION
  Report Type: Spontaneous
  Country: US (occurrence: US)
  Receive Date: 20210810
  Receipt Date: 20210810
  Transmission Date: 20211014
  Serious: No
  Sender: FDA-Public Use
  Company Number: None

PATIENT
  Age: 62 Year
  Sex: Female

DRUGS (1)
  1. DUPIXENT [Suspect]
     Active Substance: DUPILUMAB
     Indication: DERMATITIS ATOPIC
     Route: 058
     Dates: start: 202104

REACTIONS (6)
  - Wrong technique in product usage process [None]
  - Device leakage [None]
  - Device malfunction [None]
  - Injection site urticaria [None]
  - Accidental exposure to product [None]
  - Incorrect dose administered [None]

NARRATIVE: CASE EVENT DATE: 20210807
